FAERS Safety Report 6980433-X (Version None)
Quarter: 2010Q3

REPORT INFORMATION
  Report Type: 
  Country: None (occurrence: None)
  Receive Date: 20100909
  Receipt Date: 20100901
  Transmission Date: 20110219
  Serious: Yes (Hospitalization)
  Sender: FDA-Public Use
  Company Number: 017718

PATIENT
  Sex: Female
  Weight: 55 kg

DRUGS (5)
  1. VIMPAT [Suspect]
     Dosage: (100 MG QD ORAL), (50 MG QD ORAL)
     Route: 048
     Dates: start: 20100511, end: 20100515
  2. VIMPAT [Suspect]
     Dosage: (100 MG QD ORAL), (50 MG QD ORAL)
     Route: 048
     Dates: start: 20100515, end: 20100520
  3. KEPPRA [Concomitant]
  4. TEGRETOL [Concomitant]
  5. NOIAFREN [Concomitant]

REACTIONS (6)
  - ABDOMINAL PAIN [None]
  - DEREALISATION [None]
  - DISSOCIATION [None]
  - HEADACHE [None]
  - PANIC ATTACK [None]
  - PSYCHOMOTOR RETARDATION [None]
